FAERS Safety Report 12526507 (Version 1)
Quarter: 2016Q3

REPORT INFORMATION
  Report Type: Spontaneous
  Country: US (occurrence: None)
  Receive Date: 20160701
  Receipt Date: 20160701
  Transmission Date: 20161109
  Serious: No
  Sender: FDA-Public Use
  Company Number: None

PATIENT

DRUGS (1)
  1. MONSELS SOLUTION [Suspect]
     Active Substance: FERRIC SUBSULFATE
     Dates: end: 2000

REACTIONS (1)
  - Product expiration date issue [None]
